FAERS Safety Report 23742002 (Version 2)
Quarter: 2024Q2

REPORT INFORMATION
  Report Type: Spontaneous
  Country: US (occurrence: US)
  Receive Date: 20240415
  Receipt Date: 20240628
  Transmission Date: 20240715
  Serious: Yes (Other)
  Sender: FDA-Public Use
  Company Number: US-ABBVIE-5714789

PATIENT
  Sex: Male
  Weight: 64 kg

DRUGS (4)
  1. REFRESH RELIEVA PF [Suspect]
     Active Substance: CARBOXYMETHYLCELLULOSE SODIUM\GLYCERIN
     Indication: Dry eye
     Dosage: DOSE: 1 DROP EACH EYE; FREQUENCY TEXT: 3 TO 4 TIMES A DAY; FORM STRENGTH WAS 0.5%
     Route: 047
     Dates: start: 202404, end: 20240410
  2. REFRESH RELIEVA PF [Suspect]
     Active Substance: CARBOXYMETHYLCELLULOSE SODIUM\GLYCERIN
     Dosage: DOSE: 1 DROP EACH EYE; FREQUENCY TEXT: 3 TO 4 TIMES A DAY; FORM STRENGTH WAS 0.5%
     Route: 047
     Dates: start: 2018, end: 2018
  3. REFRESH OPTIVE MEGA-3 [Suspect]
     Active Substance: CARBOXYMETHYLCELLULOSE SODIUM\GLYCERIN\POLYSORBATE 80
     Indication: Dry eye
     Dosage: DOSE: 1 DROP EACH EYE, FREQUENCY TEXT: 3 TO 4 TIMES A DAY
     Route: 047
     Dates: start: 202404, end: 20240410
  4. SIMILASAN FOR INFLAMMATION OF THE MOUTH AND THROAT [Concomitant]
     Active Substance: HOMEOPATHICS
     Indication: Product used for unknown indication

REACTIONS (5)
  - Cataract [Not Recovered/Not Resolved]
  - Headache [Recovered/Resolved]
  - Drug hypersensitivity [Recovering/Resolving]
  - Eye pain [Recovering/Resolving]
  - Eye pain [Recovered/Resolved]

NARRATIVE: CASE EVENT DATE: 20180101
